FAERS Safety Report 11651256 (Version 1)
Quarter: 2015Q4

REPORT INFORMATION
  Report Type: Report from Study
  Country: JP (occurrence: JP)
  Receive Date: 20151022
  Receipt Date: 20151022
  Transmission Date: 20160304
  Serious: Yes (Hospitalization)
  Sender: FDA-Public Use
  Company Number: JP-ROCHE-1649049

PATIENT
  Sex: Female

DRUGS (1)
  1. RITUXIMAB [Suspect]
     Active Substance: RITUXIMAB
     Indication: THROMBOCYTOPENIA
     Dosage: RECEIVED TOTAL 4 DOSES IN4 WEEKS : 0, 1 , 2 AND 3 WEEK.
     Route: 042

REACTIONS (1)
  - Menorrhagia [Recovered/Resolved]
